FAERS Safety Report 6342166-2 (Version None)
Quarter: 2009Q3

REPORT INFORMATION
  Report Type: 
  Country: None (occurrence: None)
  Receive Date: 20090903
  Receipt Date: 20090903
  Transmission Date: 20100115
  Serious: No
  Sender: FDA-Public Use
  Company Number: None

PATIENT
  Sex: Male
  Weight: 70.3075 kg

DRUGS (1)
  1. FENTANYL 50 MG MCG  1 Q 72 HR TRANSDERMAL [Suspect]
     Indication: PAIN MANAGEMENT
     Dosage: 50MCG ONCE Q 72 TRANSDERMAL
     Route: 062
     Dates: start: 20090818, end: 20090824

REACTIONS (1)
  - DEVICE INEFFECTIVE [None]
